FAERS Safety Report 17917780 (Version 10)
Quarter: 2021Q2

REPORT INFORMATION
  Report Type: Spontaneous
  Country: US (occurrence: US)
  Receive Date: 20200619
  Receipt Date: 20210610
  Transmission Date: 20210717
  Serious: No
  Sender: FDA-Public Use
  Company Number: US-PFIZER INC-2017402148

PATIENT
  Age: 55 Year
  Sex: Female

DRUGS (4)
  1. SOMAVERT [Suspect]
     Active Substance: PEGVISOMANT
     Dosage: 15 MG, DAILY
     Dates: start: 20081126
  2. SOMAVERT [Suspect]
     Active Substance: PEGVISOMANT
     Dosage: 15 MG(5 DAYS A WEEK)
     Route: 058
     Dates: start: 202104
  3. SOMAVERT [Suspect]
     Active Substance: PEGVISOMANT
     Indication: ACROMEGALY
     Dosage: UNK(15 ^WHATEVER IT IS^)
     Dates: start: 2005
  4. SOMAVERT [Suspect]
     Active Substance: PEGVISOMANT
     Dosage: 15 MG, (THREE DAYS A WEEK)
     Dates: start: 20081126

REACTIONS (11)
  - Insulin-like growth factor abnormal [Unknown]
  - Malaise [Unknown]
  - Abdominal discomfort [Unknown]
  - Photophobia [Unknown]
  - Blood growth hormone increased [Unknown]
  - Liver disorder [Unknown]
  - Gastric disorder [Unknown]
  - Condition aggravated [Unknown]
  - Off label use [Unknown]
  - Product dose omission issue [Unknown]
  - Pain [Unknown]

NARRATIVE: CASE EVENT DATE: 20081126
